FAERS Safety Report 9773288 (Version 1)
Quarter: 2013Q4

REPORT INFORMATION
  Report Type: Spontaneous
  Country: IT (occurrence: IT)
  Receive Date: 20131219
  Receipt Date: 20131219
  Transmission Date: 20140711
  Serious: Yes (Hospitalization)
  Sender: FDA-Public Use
  Company Number: IT-GLAXOSMITHKLINE-B0954415A

PATIENT
  Age: 86 Year
  Sex: Female

DRUGS (3)
  1. ZANTAC [Suspect]
     Indication: PRODUCT USED FOR UNKNOWN INDICATION
     Dosage: 1VIAL PER DAY
     Route: 042
     Dates: start: 20131213
  2. LASIX [Concomitant]
  3. URBASON [Concomitant]

REACTIONS (2)
  - Erythema [Recovering/Resolving]
  - Throat tightness [Recovering/Resolving]
